FAERS Safety Report 11633587 (Version 2)
Quarter: 2015Q4

REPORT INFORMATION
  Report Type: Report from Study
  Country: DE (occurrence: DE)
  Receive Date: 20151015
  Receipt Date: 20151023
  Transmission Date: 20160304
  Serious: Yes (Hospitalization)
  Sender: FDA-Public Use
  Company Number: PHHY2015DE124936

PATIENT
  Sex: Male
  Weight: 82 kg

DRUGS (9)
  1. EXJADE [Suspect]
     Active Substance: DEFERASIROX
     Dosage: 2000 MG, QD (4 X 500 MG)
     Route: 048
     Dates: start: 20130318, end: 20130613
  2. EXJADE [Suspect]
     Active Substance: DEFERASIROX
     Dosage: 1500 MG, QD (3 X 500 MG)
     Route: 048
     Dates: start: 20130614, end: 20131208
  3. EXJADE [Suspect]
     Active Substance: DEFERASIROX
     Dosage: 1250 MG, QD (5 X 250 MG)
     Route: 048
     Dates: start: 20140317, end: 20140901
  4. EXJADE [Suspect]
     Active Substance: DEFERASIROX
     Dosage: 2500 MG, QD (5 X 500 MG)
     Route: 048
     Dates: start: 20121116, end: 20130317
  5. EXJADE [Suspect]
     Active Substance: DEFERASIROX
     Indication: MYELODYSPLASTIC SYNDROME
     Dosage: 1500 MG, QD (3 X 500 MG)
     Route: 048
     Dates: start: 20121012, end: 20121025
  6. EXJADE [Suspect]
     Active Substance: DEFERASIROX
     Indication: IRON OVERLOAD
     Dosage: 2000 MG, QD (4 X 500 MG)
     Route: 048
     Dates: start: 20121026, end: 20121115
  7. EXJADE [Suspect]
     Active Substance: DEFERASIROX
     Dosage: 1500 MG, QD (3 X 500 MG)
     Route: 048
     Dates: start: 20140217, end: 20140316
  8. EXJADE [Suspect]
     Active Substance: DEFERASIROX
     Dosage: 1500 MG, QD (3 X 500 MG)
     Route: 048
     Dates: start: 20140902
  9. EXJADE [Suspect]
     Active Substance: DEFERASIROX
     Dosage: 1250 MG, QD (5 X 250 MG)
     Route: 048
     Dates: start: 20131209, end: 20140216

REACTIONS (5)
  - Neurological symptom [Not Recovered/Not Resolved]
  - Otitis media [Recovered/Resolved]
  - Dizziness [Recovered/Resolved]
  - Weight decreased [Recovered/Resolved]
  - Hypoacusis [Recovered/Resolved]

NARRATIVE: CASE EVENT DATE: 20121012
